FAERS Safety Report 5205506-3 (Version None)
Quarter: 2006Q4

REPORT INFORMATION
  Report Type: 
  Country: None (occurrence: None)
  Receive Date: 20061027
  Receipt Date: 20060511
  Transmission Date: 20070319
  Serious: Yes (Other)
  Sender: FDA-Public Use
  Company Number: HQWYE317312MAY06

PATIENT
  Age: 87 Year
  Sex: Female

DRUGS (7)
  1. PREMARIN [Suspect]
     Indication: HOT FLUSH
     Dosage: 1 EVERY OTHER DAY TO1 TABLET DAILY, ORAL
     Route: 048
     Dates: start: 19690101
  2. FOSAMAX [Concomitant]
  3. SYNTHROID [Concomitant]
  4. ZOCOR [Concomitant]
  5. CALTRATE (CALCIUM CARBONATE) [Concomitant]
  6. ZOCOR [Concomitant]
  7. TOPROL-XL [Concomitant]

REACTIONS (2)
  - ASTHENIA [None]
  - LISTLESS [None]
